FAERS Safety Report 6834914-X (Version None)
Quarter: 2010Q3

REPORT INFORMATION
  Report Type: 
  Country: None (occurrence: None)
  Receive Date: 20100712
  Receipt Date: 20070901
  Transmission Date: 20110219
  Serious: No
  Sender: FDA-Public Use
  Company Number: US-PFIZER INC-2007032907

PATIENT
  Sex: Female
  Weight: 63.6 kg

DRUGS (4)
  1. CHANTIX [Suspect]
     Indication: SMOKING CESSATION THERAPY
     Dates: start: 20070225
  2. XANAX [Suspect]
     Indication: TREMOR
     Dates: start: 20070317
  3. LUNESTA [Suspect]
     Indication: SLEEP DISORDER
     Dosage: QHS: DAILY
     Route: 048
     Dates: start: 20070317, end: 20070413
  4. ALEVE (CAPLET) [Concomitant]
     Indication: ARTHRITIS

REACTIONS (8)
  - ANGER [None]
  - ANXIETY [None]
  - DEPRESSION [None]
  - EMOTIONAL DISORDER [None]
  - FEELING ABNORMAL [None]
  - INSOMNIA [None]
  - IRRITABILITY [None]
  - TREMOR [None]
